FAERS Safety Report 23876635 (Version 1)
Quarter: 2024Q2

REPORT INFORMATION
  Report Type: Spontaneous
  Country: JP (occurrence: JP)
  Receive Date: 20240521
  Receipt Date: 20240521
  Transmission Date: 20240715
  Serious: Yes (Other)
  Sender: FDA-Public Use
  Company Number: JP-NOVITIUMPHARMA-2024JPNVP00835

PATIENT
  Sex: Male

DRUGS (6)
  1. DAPSONE [Suspect]
     Active Substance: DAPSONE
     Indication: Dermatitis exfoliative generalised
  2. LEVOCETIRIZINE [Concomitant]
     Active Substance: LEVOCETIRIZINE
     Indication: Product used for unknown indication
  3. BEPOTASTINE [Concomitant]
     Active Substance: BEPOTASTINE
     Indication: Product used for unknown indication
  4. SUVOREXANT [Concomitant]
     Active Substance: SUVOREXANT
     Indication: Product used for unknown indication
  5. AMLODIPINE [Concomitant]
     Active Substance: AMLODIPINE BESYLATE
     Indication: Product used for unknown indication
  6. CANDESARTAN CILEXETIL [Concomitant]
     Active Substance: CANDESARTAN CILEXETIL
     Indication: Product used for unknown indication

REACTIONS (3)
  - Haemolytic anaemia [Recovering/Resolving]
  - Drug level increased [Unknown]
  - Drug interaction [Unknown]
